FAERS Safety Report 16285267 (Version 1)
Quarter: 2019Q2

REPORT INFORMATION
  Report Type: Spontaneous
  Country: US (occurrence: US)
  Receive Date: 20190506
  Receipt Date: 20190506
  Transmission Date: 20190711
  Serious: Yes (Other)
  Sender: FDA-Public Use
  Company Number: None

PATIENT
  Age: 39 Year
  Sex: Female
  Weight: 85.5 kg

DRUGS (4)
  1. BC (ASPIRIN\CAFFEINE) [Concomitant]
     Active Substance: ASPIRIN\CAFFEINE
  2. BC (ASPIRIN\CAFFEINE) [Suspect]
     Active Substance: ASPIRIN\CAFFEINE
     Indication: HEADACHE
     Dosage: ?          QUANTITY:2 2;?
     Route: 048
     Dates: start: 20190425, end: 20190426
  3. BC (ASPIRIN\CAFFEINE) [Suspect]
     Active Substance: ASPIRIN\CAFFEINE
     Indication: BACK PAIN
     Dosage: ?          QUANTITY:2 2;?
     Route: 048
     Dates: start: 20190425, end: 20190426
  4. FERROUS SULFATE. [Concomitant]
     Active Substance: FERROUS SULFATE

REACTIONS (4)
  - Abdominal pain upper [None]
  - Vomiting [None]
  - Dizziness [None]
  - Product quality issue [None]

NARRATIVE: CASE EVENT DATE: 20190425
